FAERS Safety Report 9052317 (Version 1)
Quarter: 2013Q1

REPORT INFORMATION
  Report Type: Spontaneous
  Country: BE (occurrence: BE)
  Receive Date: 20130206
  Receipt Date: 20130206
  Transmission Date: 20140127
  Serious: Yes (Other)
  Sender: FDA-Public Use
  Company Number: BE-PFIZER INC-2013041870

PATIENT
  Sex: Female

DRUGS (4)
  1. SOSTILAR [Suspect]
     Dosage: UNK
     Dates: start: 2008
  2. AMOXICILLIN TRIHYDRATE, CLAVULANIC ACID [Suspect]
     Dosage: UNK
  3. METHYLPREDNISOLONE [Suspect]
     Dosage: UNK
  4. NASODREN [Concomitant]

REACTIONS (1)
  - Hypersensitivity [Unknown]
